FAERS Safety Report 4475480-6 (Version None)
Quarter: 2004Q4

REPORT INFORMATION
  Report Type: 
  Country: None (occurrence: None)
  Receive Date: 20041015
  Receipt Date: 20041005
  Transmission Date: 20050328
  Serious: Yes (Hospitalization)
  Sender: FDA-Public Use
  Company Number: JP-BRISTOL-MYERS SQUIBB COMPANY-12728051

PATIENT
  Age: 12 Year
  Sex: Female

DRUGS (13)
  1. ENDOXAN [Suspect]
     Indication: LYMPHOMA
     Dosage: LAST DOSE:  04-MAR-2002
     Route: 041
     Dates: start: 20020118, end: 20020118
  2. METHOTREXATE [Suspect]
     Indication: LYMPHOMA
     Dosage: LAST DOSE:  12-MAR-2002
     Dates: start: 20020118, end: 20020118
  3. PREDONINE [Suspect]
     Indication: LYMPHOMA
     Route: 048
     Dates: start: 20020112, end: 20020220
  4. ONCOVIN [Suspect]
     Indication: LYMPHOMA
     Route: 042
     Dates: start: 20020118, end: 20020311
  5. ADRIACIN [Suspect]
     Indication: LYMPHOMA
     Dates: start: 20020119, end: 20020307
  6. DECADRON [Suspect]
     Indication: LYMPHOMA
     Dates: start: 20020118, end: 20020124
  7. LEUNASE [Suspect]
     Indication: LYMPHOMA
     Dates: start: 20020126, end: 20020211
  8. CYTARABINE [Suspect]
     Indication: LYMPHOMA
     Dates: start: 20020118, end: 20020312
  9. SOLU-CORTEF [Suspect]
     Indication: LYMPHOMA
     Dates: start: 20020118, end: 20020312
  10. ALLOPURINOL TAB [Concomitant]
     Dates: start: 20020118, end: 20020220
  11. BAKTAR [Concomitant]
     Dates: start: 20020130
  12. POLYMYXIN B SULFATE [Concomitant]
     Dates: start: 20020130, end: 20020330
  13. FUNGIZONE [Concomitant]
     Dates: start: 20020130, end: 20020330

REACTIONS (1)
  - LEUKOENCEPHALOPATHY [None]
